FAERS Safety Report 25727587 (Version 2)
Quarter: 2025Q3

REPORT INFORMATION
  Report Type: Spontaneous
  Country: US (occurrence: US)
  Receive Date: 20250826
  Receipt Date: 20250828
  Transmission Date: 20251020
  Serious: Yes (Other)
  Sender: PURDUE
  Company Number: US-PURDUE PHARMA-USA-2025-0319936

PATIENT
  Sex: Male

DRUGS (1)
  1. OXYCONTIN [Suspect]
     Active Substance: OXYCODONE HYDROCHLORIDE
     Indication: Pain
     Dosage: 10 MILLIGRAM, DAILY
     Route: 048

REACTIONS (8)
  - Drug dependence [Recovering/Resolving]
  - Bedridden [Unknown]
  - Nerve injury [Unknown]
  - Condition aggravated [Unknown]
  - Impaired quality of life [Unknown]
  - Injury [Unknown]
  - Inadequate analgesia [Unknown]
  - Headache [Unknown]
